FAERS Safety Report 22646858 (Version 1)
Quarter: 2023Q2

REPORT INFORMATION
  Report Type: Spontaneous
  Country: BR (occurrence: BR)
  Receive Date: 20230627
  Receipt Date: 20230627
  Transmission Date: 20230722
  Serious: Yes (Death, Life-Threatening, Hospitalization, Other)
  Sender: FDA-Public Use
  Company Number: BR-BRISTOL-MYERS SQUIBB COMPANY-2023-054171

PATIENT
  Age: 53 Year
  Sex: Female

DRUGS (8)
  1. REVLIMID [Suspect]
     Active Substance: LENALIDOMIDE
     Indication: Plasma cell myeloma
     Dates: start: 20230328, end: 20230410
  2. DEXAMETHASONE [Suspect]
     Active Substance: DEXAMETHASONE
     Indication: Plasma cell myeloma
  3. ALLOPURINOL [Suspect]
     Active Substance: ALLOPURINOL
     Indication: Hyperuricaemia
     Dates: start: 20230314, end: 20230423
  4. BORTEZOMIB [Suspect]
     Active Substance: BORTEZOMIB
     Indication: Plasma cell myeloma
     Dosage: 1 AMPOULE 3 DOSES?27/APR/23?04/APR/23?11/APR/23
     Route: 058
  5. BACTRIM [Concomitant]
     Active Substance: SULFAMETHOXAZOLE\TRIMETHOPRIM
     Indication: Product used for unknown indication
  6. ACYCLOVIR [Concomitant]
     Active Substance: ACYCLOVIR
     Indication: Product used for unknown indication
  7. PAZINE [Concomitant]
     Indication: Product used for unknown indication
  8. VANCOMYCIN [Concomitant]
     Active Substance: VANCOMYCIN
     Indication: Mucosal inflammation
     Dosage: 1G 12/12H
     Route: 042
     Dates: start: 20230410, end: 20230414

REACTIONS (5)
  - Stevens-Johnson syndrome [Fatal]
  - Toxic epidermal necrolysis [Fatal]
  - Neutropenia [Unknown]
  - Systemic mycosis [Fatal]
  - Septic shock [Fatal]

NARRATIVE: CASE EVENT DATE: 20230410
